FAERS Safety Report 19381669 (Version 1)
Quarter: 2021Q2

REPORT INFORMATION
  Report Type: Spontaneous
  Country: GB (occurrence: GB)
  Receive Date: 20210607
  Receipt Date: 20210607
  Transmission Date: 20210717
  Serious: Yes (Disabling)
  Sender: FDA-Public Use
  Company Number: GB-TEVA-2021-XI-1918484

PATIENT
  Age: 24 Year
  Sex: Male

DRUGS (1)
  1. ESCITALOPRAM [Suspect]
     Active Substance: ESCITALOPRAM OXALATE
     Indication: ANTIDEPRESSANT THERAPY
     Route: 048
     Dates: start: 201507, end: 201509

REACTIONS (10)
  - Suicidal ideation [Unknown]
  - Hallucination, visual [Unknown]
  - Irritability [Unknown]
  - Feeling abnormal [Unknown]
  - Suicide attempt [Unknown]
  - Hallucination, auditory [Unknown]
  - Mood swings [Unknown]
  - Agitation [Unknown]
  - Anger [Unknown]
  - Intrusive thoughts [Unknown]
